FAERS Safety Report 19878194 (Version 1)
Quarter: 2021Q3

REPORT INFORMATION
  Report Type: Spontaneous
  Country: TW (occurrence: TW)
  Receive Date: 20210923
  Receipt Date: 20210923
  Transmission Date: 20211014
  Serious: Yes (Death)
  Sender: FDA-Public Use
  Company Number: NVSC2021TW215212

PATIENT
  Age: 45 Year
  Sex: Male

DRUGS (4)
  1. OCTREOTIDE. [Suspect]
     Active Substance: OCTREOTIDE
  2. OCTREOTIDE. [Suspect]
     Active Substance: OCTREOTIDE
  3. OCTREOTIDE. [Suspect]
     Active Substance: OCTREOTIDE
     Indication: PANCREATIC NEUROENDOCRINE TUMOUR METASTATIC
     Dosage: 20 MG, QMO  (EVERY 28 DAYS)
     Route: 065
  4. EVEROLIMUS. [Suspect]
     Active Substance: EVEROLIMUS
     Indication: PANCREATIC NEUROENDOCRINE TUMOUR METASTATIC
     Dosage: 5 MG, BID
     Route: 065

REACTIONS (3)
  - Acute hepatic failure [Fatal]
  - Hepatitis B reactivation [Fatal]
  - Therapy partial responder [Unknown]
